FAERS Safety Report 9332923 (Version 2)
Quarter: 2018Q3

REPORT INFORMATION
  Report Type: Spontaneous
  Country: DE (occurrence: DE)
  Receive Date: 20130606
  Receipt Date: 20180716
  Transmission Date: 20181010
  Serious: Yes (Death, Other)
  Sender: FDA-Public Use
  Company Number: DE-UCBSA-087668

PATIENT
  Age: 40 Year
  Sex: Female
  Weight: 47 kg

DRUGS (17)
  1. LAMOTRIGINE. [Suspect]
     Active Substance: LAMOTRIGINE
     Dosage: WEEK 2: 100 MG?1 IN THE MORNING AND 2  IN THE EVENING
  2. CIPRAMIL [Suspect]
     Active Substance: CITALOPRAM HYDROBROMIDE
     Indication: PRODUCT USED FOR UNKNOWN INDICATION
     Dosage: UNK
  3. KEPPRA [Suspect]
     Active Substance: LEVETIRACETAM
  4. LAMOTRIGINE. [Suspect]
     Active Substance: LAMOTRIGINE
     Indication: PRODUCT USED FOR UNKNOWN INDICATION
     Dosage: WEEK 1: 100 MG; 1 IN THE MORNING AND 1 AND HALF IN THE EVENING
  5. VALDOXAN [Suspect]
     Active Substance: AGOMELATINE
     Indication: PRODUCT USED FOR UNKNOWN INDICATION
     Dosage: 98 TABLETS; 25 MG
  6. CLOBAZAM [Suspect]
     Active Substance: CLOBAZAM
     Indication: PRODUCT USED FOR UNKNOWN INDICATION
     Dosage: UNK
  7. DIAMOX SEQUELS [Suspect]
     Active Substance: ACETAZOLAMIDE
     Indication: PRODUCT USED FOR UNKNOWN INDICATION
     Dosage: DAILY DOSE: 2 DF DOSAGE FORM EVERY DAY
  8. LAMOTRIGINE. [Suspect]
     Active Substance: LAMOTRIGINE
  9. LORAZEPAM. [Suspect]
     Active Substance: LORAZEPAM
     Indication: PRODUCT USED FOR UNKNOWN INDICATION
     Dosage: UNK UNK, AS NEEDED (PRN)
  10. VIMPAT [Suspect]
     Active Substance: LACOSAMIDE
     Indication: PRODUCT USED FOR UNKNOWN INDICATION
     Dosage: 100 MG?168 TABLETS, IN THE MORNING AND 1 AND A HALF IN THE EVENING
  11. VIMPAT [Suspect]
     Active Substance: LACOSAMIDE
     Dosage: 100 MG IN AM (1 TAB) AND 150 MG IN PM (1 1/2 TAB)
  12. LAMOTRIGINE. [Suspect]
     Active Substance: LAMOTRIGINE
     Dosage: WEEK 4: 100 MG?2 IN THE MORNING AND 2 IN THE EVENING
  13. KEPPRA [Suspect]
     Active Substance: LEVETIRACETAM
     Indication: EPILEPSY
     Dosage: 1000 MG, 1 AND HALF IN THE MORNING AND EVENING
  14. VALDOXAN [Suspect]
     Active Substance: AGOMELATINE
     Dosage: DAILY DOSE: 50 MG MILLIGRAM(S) EVERY DAY  UNK
  15. LAMOTRIGINE. [Suspect]
     Active Substance: LAMOTRIGINE
     Dosage: WEEK 3: 100 MG?1 AND HALF  IN THE MORNING AND 2 IN THE EVENING
  16. DIAMOX SEQUELS [Suspect]
     Active Substance: ACETAZOLAMIDE
     Dosage: DILY DOSE: 1 DF DOSAGE FORM EVERY DAYUNK
  17. CAPTAN [Suspect]
     Active Substance: CAPTAN

REACTIONS (3)
  - Overdose [Fatal]
  - Toxicity to various agents [Fatal]
  - Completed suicide [Fatal]
